FAERS Safety Report 6556868-6 (Version None)
Quarter: 2010Q1

REPORT INFORMATION
  Report Type: 
  Country: None (occurrence: None)
  Receive Date: 20100128
  Receipt Date: 20100126
  Transmission Date: 20100710
  Serious: Yes (Death, Hospitalization)
  Sender: FDA-Public Use
  Company Number: PHHY2009US54653

PATIENT
  Sex: Male
  Weight: 57.143 kg

DRUGS (2)
  1. EXJADE [Suspect]
     Indication: MYELODYSPLASTIC SYNDROME
     Dosage: 500 - 1000MG, QD
     Route: 048
     Dates: start: 20090618, end: 20090817
  2. EXJADE [Suspect]
     Indication: IRON OVERLOAD

REACTIONS (6)
  - CARDIAC ARREST [None]
  - LAPAROTOMY [None]
  - MULTI-ORGAN FAILURE [None]
  - PNEUMONIA [None]
  - SMALL INTESTINAL OBSTRUCTION [None]
  - URINARY TRACT INFECTION [None]
